FAERS Safety Report 16156337 (Version 1)
Quarter: 2019Q2

REPORT INFORMATION
  Report Type: Spontaneous
  Country: GB (occurrence: GB)
  Receive Date: 20190404
  Receipt Date: 20190404
  Transmission Date: 20190711
  Serious: Yes (Hospitalization)
  Sender: FDA-Public Use
  Company Number: GB-ROCHE-2152729

PATIENT
  Sex: Female

DRUGS (4)
  1. GEMCITABINE [Concomitant]
     Active Substance: GEMCITABINE\GEMCITABINE HYDROCHLORIDE
     Dosage: THERAPY START DATE : JANUARY / FEBRUARY 2016
     Route: 065
     Dates: start: 2016
  2. AVASTIN [Suspect]
     Active Substance: BEVACIZUMAB
     Indication: PRODUCT USED FOR UNKNOWN INDICATION
     Dosage: THERAPY START DATE: JANUARY / FEBRUARY 2016
     Route: 065
     Dates: start: 2016
  3. AVASTIN [Suspect]
     Active Substance: BEVACIZUMAB
     Dosage: THERAPY START DATE: JANUARY / FEBRUARY 2016
     Route: 065
     Dates: start: 2016
  4. DOCETAXEL. [Concomitant]
     Active Substance: DOCETAXEL
     Route: 065

REACTIONS (2)
  - Nausea [Recovered/Resolved]
  - Feeding disorder [Recovered/Resolved]
